FAERS Safety Report 11630318 (Version 10)
Quarter: 2020Q3

REPORT INFORMATION
  Report Type: Report from Study
  Country: DE (occurrence: DE)
  Receive Date: 20151014
  Receipt Date: 20200813
  Transmission Date: 20201102
  Serious: Yes (Life-Threatening, Hospitalization, Other)
  Sender: FDA-Public Use
  Company Number: DE-BRISTOL-MYERS SQUIBB COMPANY-BMS-2015-070251

PATIENT
  Age: 56 Year
  Sex: Male

DRUGS (15)
  1. HEPARIN [Concomitant]
     Active Substance: HEPARIN SODIUM
     Indication: PRODUCT USED FOR UNKNOWN INDICATION
     Dosage: 500 IU, QH
     Route: 042
     Dates: start: 20150902
  2. HEPARIN [Concomitant]
     Active Substance: HEPARIN SODIUM
     Dosage: 700 IU, QH
     Route: 042
     Dates: start: 20150903, end: 20150903
  3. HEPARIN [Concomitant]
     Active Substance: HEPARIN SODIUM
     Dosage: 1000 IU, QH
     Route: 042
     Dates: start: 20150903
  4. HEPARIN [Concomitant]
     Active Substance: HEPARIN SODIUM
     Dosage: 1000 IU, QH
     Route: 042
     Dates: start: 20150903, end: 20150903
  5. HEPARIN [Concomitant]
     Active Substance: HEPARIN SODIUM
     Dosage: 1400 IU, QH
     Route: 042
     Dates: start: 20150905
  6. HEPARIN [Concomitant]
     Active Substance: HEPARIN SODIUM
     Dosage: 500 IU, QH
     Route: 042
     Dates: start: 20150903, end: 20150903
  7. APIXABAN [Suspect]
     Active Substance: APIXABAN
     Indication: CEREBROVASCULAR ACCIDENT PROPHYLAXIS
     Dosage: 5 MG, BID
     Route: 048
     Dates: start: 20141021, end: 20150901
  8. GELAFUNDIN [GELATINE POLYSUCCINATE] [Concomitant]
     Indication: PRODUCT USED FOR UNKNOWN INDICATION
     Dosage: 500 ML, UNK
     Route: 042
     Dates: end: 20150902
  9. HEPARIN [Concomitant]
     Active Substance: HEPARIN SODIUM
     Dosage: 1200 IU, QH
     Route: 042
     Dates: start: 20150910, end: 20150910
  10. HEPARIN [Concomitant]
     Active Substance: HEPARIN SODIUM
     Dosage: 400 IU, QH
     Route: 042
     Dates: start: 20150910, end: 20150910
  11. HEPARIN [Concomitant]
     Active Substance: HEPARIN SODIUM
     Dosage: 1600 IU, QH
     Route: 042
     Dates: start: 20150907, end: 20150909
  12. HEPARIN [Concomitant]
     Active Substance: HEPARIN SODIUM
     Dosage: 900 IU, QH
     Route: 042
     Dates: start: 20150903, end: 20150903
  13. HEPARIN [Concomitant]
     Active Substance: HEPARIN SODIUM
     Dosage: 1300 IU, QH
     Route: 042
     Dates: start: 20150905, end: 20150905
  14. HEPARIN [Concomitant]
     Active Substance: HEPARIN SODIUM
     Dosage: 1400 IU, QH
     Route: 042
     Dates: start: 20150910
  15. VITAMIN C [Concomitant]
     Active Substance: ASCORBIC ACID
     Indication: PRODUCT USED FOR UNKNOWN INDICATION
     Dosage: 500 MG, UNK
     Route: 042
     Dates: end: 20150907

REACTIONS (3)
  - Ischaemic cardiomyopathy [Not Recovered/Not Resolved]
  - Ventricular arrhythmia [Unknown]
  - Pericardial effusion [Recovering/Resolving]

NARRATIVE: CASE EVENT DATE: 20150902
